FAERS Safety Report 6415697-4 (Version None)
Quarter: 2009Q4

REPORT INFORMATION
  Report Type: 
  Country: None (occurrence: None)
  Receive Date: 20091027
  Receipt Date: 20091019
  Transmission Date: 20100525
  Serious: Yes (Other)
  Sender: FDA-Public Use
  Company Number: US-JNJFOC-20090904553

PATIENT
  Sex: Female
  Weight: 81.65 kg

DRUGS (19)
  1. DURAGESIC-100 [Suspect]
     Indication: SPINAL OSTEOARTHRITIS
     Route: 062
  2. ZANAFLEX [Suspect]
     Indication: MUSCLE SPASMS
     Route: 048
     Dates: start: 20090101, end: 20090101
  3. PREMARIN [Concomitant]
     Indication: HORMONE REPLACEMENT THERAPY
     Route: 048
  4. VALIUM [Concomitant]
     Indication: MYALGIA
     Route: 048
  5. OXYCODONE [Concomitant]
  6. NEURONTIN [Concomitant]
  7. LEVOTHYROXINE SODIUM [Concomitant]
  8. PROMETHAZINE [Concomitant]
  9. PROMETHAZINE [Concomitant]
  10. CYMBALTA [Concomitant]
  11. AMBIEN [Concomitant]
  12. COLACE [Concomitant]
  13. MUCINEX [Concomitant]
  14. PROTONIX [Concomitant]
  15. RESTASIS [Concomitant]
  16. COMBIVENT [Concomitant]
  17. ZITHROMAX [Concomitant]
  18. STEROIDS NOS [Concomitant]
  19. COUGH SYRUP WITH CODEINE (UNSPECIFIC) [Concomitant]

REACTIONS (11)
  - DRUG DOSE OMISSION [None]
  - DRUG SCREEN NEGATIVE [None]
  - FALL [None]
  - HEART RATE INCREASED [None]
  - HYPERSENSITIVITY [None]
  - INSOMNIA [None]
  - MUSCLE SPASMS [None]
  - NAUSEA [None]
  - NEURALGIA [None]
  - PARALYSIS [None]
  - THYROID DISORDER [None]
